FAERS Safety Report 25978421 (Version 1)
Quarter: 2025Q4

REPORT INFORMATION
  Report Type: Spontaneous
  Country: US (occurrence: US)
  Receive Date: 20251030
  Receipt Date: 20251030
  Transmission Date: 20260117
  Serious: Yes (Hospitalization)
  Sender: ACCORD
  Company Number: US-MLMSERVICE-20251010-PI671901-00232-1

PATIENT
  Age: 36 Year
  Sex: Female

DRUGS (2)
  1. MYCOPHENOLATE MOFETIL [Suspect]
     Active Substance: MYCOPHENOLATE MOFETIL
     Indication: Immunosuppressant drug therapy
  2. TACROLIMUS [Suspect]
     Active Substance: TACROLIMUS
     Indication: Immunosuppressant drug therapy

REACTIONS (5)
  - Malacoplakia [Recovering/Resolving]
  - Escherichia pyelonephritis [Recovering/Resolving]
  - Acute kidney injury [Recovering/Resolving]
  - Pyelonephritis [Recovering/Resolving]
  - Bacteraemia [Recovering/Resolving]
